FAERS Safety Report 9051053 (Version 34)
Quarter: 2016Q2

REPORT INFORMATION
  Report Type: Report from Study
  Country: CA (occurrence: CA)
  Receive Date: 20130205
  Receipt Date: 20160627
  Transmission Date: 20160815
  Serious: Yes (Death, Hospitalization, Other)
  Sender: FDA-Public Use
  Company Number: PHHY2012CA091534

PATIENT
  Age: 54 Year
  Sex: Male

DRUGS (7)
  1. SANDOSTATIN LAR DEPOT [Suspect]
     Active Substance: OCTREOTIDE ACETATE
     Dosage: 30 MG, EVERY 4 WEEKS
     Route: 030
  2. SANDOSTATIN [Suspect]
     Active Substance: OCTREOTIDE ACETATE
     Dosage: 100 UG, (50 ML PER HOUR)
     Route: 042
     Dates: start: 201605
  3. SANDOSTATIN LAR DEPOT [Suspect]
     Active Substance: OCTREOTIDE ACETATE
     Dosage: 60 MG, QMO (EVERY 4 WEEKS)
     Route: 030
     Dates: end: 20160428
  4. SANDOSTATIN LAR DEPOT [Suspect]
     Active Substance: OCTREOTIDE ACETATE
     Indication: CARCINOID TUMOUR
     Dosage: 30 MG, QMO (EVERY 4 WEEKS)
     Route: 030
     Dates: start: 20100617
  5. SANDOSTATIN [Suspect]
     Active Substance: OCTREOTIDE ACETATE
     Indication: CARCINOID TUMOUR
     Dosage: 50 UG, UNK (TEST DOSE)
     Route: 058
     Dates: start: 20100531, end: 20100531
  6. SANDOSTATIN LAR DEPOT [Suspect]
     Active Substance: OCTREOTIDE ACETATE
     Dosage: 60 MG, QMO (EVERY 4 WEEKS)
     Route: 030
  7. SANDOSTATIN [Suspect]
     Active Substance: OCTREOTIDE ACETATE
     Dosage: 200 UG, Q8H
     Route: 058

REACTIONS (41)
  - Diverticulitis [Unknown]
  - Malaise [Unknown]
  - Vomiting [Unknown]
  - Hepatic neoplasm [Unknown]
  - Needle issue [Unknown]
  - Diaphragm neoplasm [Unknown]
  - Blood pressure systolic increased [Unknown]
  - Blood pressure diastolic increased [Unknown]
  - Clostridium difficile colitis [Recovered/Resolved]
  - Asthenia [Unknown]
  - Nausea [Unknown]
  - Bone neoplasm [Unknown]
  - Skin turgor decreased [Unknown]
  - Pain [Unknown]
  - Blood pressure diastolic decreased [Unknown]
  - Feeling abnormal [Unknown]
  - Bone pain [Unknown]
  - Abdominal pain [Unknown]
  - Infection [Unknown]
  - Dehydration [Unknown]
  - Metastases to spine [Unknown]
  - Frustration tolerance decreased [Unknown]
  - Gait disturbance [Unknown]
  - Dyspnoea [Recovering/Resolving]
  - Injection site pain [Recovered/Resolved]
  - Death [Fatal]
  - Diarrhoea [Not Recovered/Not Resolved]
  - Back pain [Recovered/Resolved]
  - Metastases to pelvis [Unknown]
  - Movement disorder [Unknown]
  - 5-hydroxyindolacetic acid increased [Unknown]
  - Fatigue [Unknown]
  - Heart rate increased [Unknown]
  - Energy increased [Unknown]
  - Lid sulcus deepened [Unknown]
  - Bronchial neoplasm [Recovering/Resolving]
  - Inguinal hernia [Recovered/Resolved]
  - Weight decreased [Unknown]
  - Musculoskeletal discomfort [Unknown]
  - Oedema due to hepatic disease [Unknown]
  - Incorrect product storage [Unknown]

NARRATIVE: CASE EVENT DATE: 201211
